FAERS Safety Report 8929320 (Version 1)
Quarter: 2012Q4

REPORT INFORMATION
  Report Type: 
  Country: US (occurrence: US)
  Receive Date: 20121127
  Receipt Date: 20121127
  Transmission Date: 20130627
  Serious: No
  Sender: FDA-Public Use
  Company Number: US-009507513-1211USA009028

PATIENT
  Sex: Female

DRUGS (1)
  1. DULERA [Suspect]
     Indication: BRONCHITIS
     Dosage: 2 puff am and 2 puff pm
     Route: 055
     Dates: start: 201206

REACTIONS (3)
  - Drug ineffective [Unknown]
  - Drug dose omission [Unknown]
  - Product dosage form issue [Unknown]
